FAERS Safety Report 6894648-2 (Version None)
Quarter: 2010Q3

REPORT INFORMATION
  Report Type: 
  Country: None (occurrence: None)
  Receive Date: 20100802
  Receipt Date: 20100720
  Transmission Date: 20110219
  Serious: Yes (Death)
  Sender: FDA-Public Use
  Company Number: US-MYLANLABS-2010S1013498

PATIENT
  Sex: Male

DRUGS (1)
  1. FENTANYL CITRATE [Suspect]
     Indication: PAIN
     Dosage: CHANGED PATCHES EVERY 72 HOURS
     Route: 062
     Dates: start: 20080714, end: 20080716

REACTIONS (2)
  - NARCOTIC INTOXICATION [None]
  - OVERDOSE [None]
